FAERS Safety Report 9306550 (Version 1)
Quarter: 2013Q2

REPORT INFORMATION
  Report Type: Spontaneous
  Country: US (occurrence: US)
  Receive Date: 20130523
  Receipt Date: 20130523
  Transmission Date: 20140414
  Serious: Yes (Hospitalization, Other)
  Sender: FDA-Public Use
  Company Number: US-TEVA-407158USA

PATIENT
  Age: 51 Year
  Sex: Male

DRUGS (1)
  1. BUPROPION [Suspect]
     Indication: DRUG ABUSE
     Route: 045

REACTIONS (4)
  - Serotonin syndrome [Unknown]
  - Dependence [Unknown]
  - Drug abuse [Unknown]
  - Convulsion [Unknown]
